FAERS Safety Report 7591729-5 (Version None)
Quarter: 2011Q3

REPORT INFORMATION
  Report Type: 
  Country: None (occurrence: None)
  Receive Date: 20110701
  Receipt Date: 20110701
  Transmission Date: 20111222
  Serious: Yes (Death)
  Sender: FDA-Public Use
  Company Number: None

PATIENT
  Age: 59 Year
  Sex: Male
  Weight: 81.6475 kg

DRUGS (1)
  1. TOVIAZ [Suspect]
     Indication: ARRHYTHMIA
     Dosage: 1 1 TIME A DAY
     Dates: start: 20110104, end: 20110108

REACTIONS (2)
  - ARRHYTHMIA [None]
  - SUDDEN DEATH [None]
